FAERS Safety Report 10095969 (Version 2)
Quarter: 2014Q2

REPORT INFORMATION
  Report Type: Spontaneous
  Country: US (occurrence: US)
  Receive Date: 20140422
  Receipt Date: 20140422
  Transmission Date: 20141212
  Serious: No
  Sender: FDA-Public Use
  Company Number: US-GILEAD-2013-0074580

PATIENT
  Age: 68 Year
  Sex: Female

DRUGS (3)
  1. LETAIRIS [Suspect]
     Indication: PULMONARY HYPERTENSION
     Dosage: 5 MG, QD
     Dates: start: 20130408
  2. LETAIRIS [Suspect]
     Indication: PORTAL HYPERTENSION
  3. EPOPROSTENOL [Concomitant]

REACTIONS (2)
  - Fluid retention [Unknown]
  - Dyspnoea [Recovered/Resolved]
